FAERS Safety Report 17826892 (Version 2)
Quarter: 2020Q2

REPORT INFORMATION
  Report Type: Spontaneous
  Country: KW (occurrence: KW)
  Receive Date: 20200526
  Receipt Date: 20200609
  Transmission Date: 20200714
  Serious: Yes (Death, Other)
  Sender: FDA-Public Use
  Company Number: NVSC2020KW144164

PATIENT

DRUGS (1)
  1. REVOLADE [Suspect]
     Active Substance: ELTROMBOPAG
     Indication: CHRONIC MYELOID LEUKAEMIA
     Dosage: 50 MG
     Route: 065

REACTIONS (3)
  - Pneumonia cytomegaloviral [Fatal]
  - Chronic myeloid leukaemia [Unknown]
  - Product use in unapproved indication [Unknown]
